FAERS Safety Report 17459066 (Version 1)
Quarter: 2020Q1

REPORT INFORMATION
  Report Type: Spontaneous
  Country: US (occurrence: US)
  Receive Date: 20200225
  Receipt Date: 20200225
  Transmission Date: 20200409
  Serious: No
  Sender: FDA-Public Use
  Company Number: US-IGSA-SR10008846

PATIENT
  Age: 82 Year
  Sex: Female
  Weight: 48.5 kg

DRUGS (19)
  1. PROLASTIN-C LIQUID [Suspect]
     Active Substance: .ALPHA.1-PROTEINASE INHIBITOR HUMAN
     Dosage: 5820 MG, Q.WK.
     Route: 042
     Dates: start: 20191017
  2. ZITHROMAX [Concomitant]
     Active Substance: AZITHROMYCIN DIHYDRATE
  3. OXYGEN. [Concomitant]
     Active Substance: OXYGEN
  4. KLOR-CON [Concomitant]
     Active Substance: POTASSIUM CHLORIDE
  5. ZYRTEC [Concomitant]
     Active Substance: CETIRIZINE HYDROCHLORIDE
  6. PULMICORT TURBUHALER [Concomitant]
     Active Substance: BUDESONIDE
  7. ASPIRIN                            /00002701/ [Concomitant]
     Active Substance: ASPIRIN
  8. ATROVENT [Concomitant]
     Active Substance: IPRATROPIUM BROMIDE
  9. ALBUTEROL W/IPRATROPIUM [Concomitant]
     Active Substance: ALBUTEROL\IPRATROPIUM
  10. METOPROLOL. [Concomitant]
     Active Substance: METOPROLOL
  11. NASONEX [Concomitant]
     Active Substance: MOMETASONE FUROATE
  12. PROCARDIA [Concomitant]
     Active Substance: NIFEDIPINE
  13. SEREVENT DISKUS [Concomitant]
     Active Substance: SALMETEROL XINAFOATE
  14. VITAMIN D                          /00107901/ [Concomitant]
     Active Substance: ERGOCALCIFEROL
  15. PROLASTIN-C LIQUID [Suspect]
     Active Substance: .ALPHA.1-PROTEINASE INHIBITOR HUMAN
     Indication: ALPHA-1 ANTI-TRYPSIN DEFICIENCY
     Dosage: 5820 MG, Q.WK.
     Route: 042
     Dates: start: 20190502
  16. ACETAMINOPHEN W/HYDROCODONE [Concomitant]
     Active Substance: ACETAMINOPHEN\HYDROCODONE
  17. OMEPRAZOLE. [Concomitant]
     Active Substance: OMEPRAZOLE
  18. ZOCOR [Concomitant]
     Active Substance: SIMVASTATIN
  19. IPRATROPIUM [Concomitant]
     Active Substance: IPRATROPIUM

REACTIONS (3)
  - Drug ineffective [Not Recovered/Not Resolved]
  - Dyspnoea [Not Recovered/Not Resolved]
  - Diarrhoea [Not Recovered/Not Resolved]

NARRATIVE: CASE EVENT DATE: 20190502
